FAERS Safety Report 18414656 (Version 1)
Quarter: 2020Q4

REPORT INFORMATION
  Report Type: Spontaneous
  Country: US (occurrence: US)
  Receive Date: 20201022
  Receipt Date: 20201022
  Transmission Date: 20210114
  Serious: Yes (Other)
  Sender: FDA-Public Use
  Company Number: US-MYLANLABS-2020M1088301

PATIENT
  Sex: Female
  Weight: 73 kg

DRUGS (1)
  1. ACITRETIN CAPSULES USP [Suspect]
     Active Substance: ACITRETIN
     Indication: ECZEMA
     Dosage: 10 MILLIGRAM, QD (1 CAP DAILY)
     Route: 048
     Dates: start: 20200103, end: 20200526

REACTIONS (9)
  - Dermatitis exfoliative [Recovering/Resolving]
  - Discontinued product administered [Not Recovered/Not Resolved]
  - Chapped lips [Recovering/Resolving]
  - Liver disorder [Not Recovered/Not Resolved]
  - Alopecia [Recovering/Resolving]
  - Onychoclasis [Recovering/Resolving]
  - Skin exfoliation [Recovering/Resolving]
  - Pyelonephritis [Recovered/Resolved]
  - Blood cholesterol increased [Not Recovered/Not Resolved]
